FAERS Safety Report 16516301 (Version 1)
Quarter: 2019Q3

REPORT INFORMATION
  Report Type: Spontaneous
  Country: US (occurrence: US)
  Receive Date: 20190702
  Receipt Date: 20190702
  Transmission Date: 20191004
  Serious: No
  Sender: FDA-Public Use
  Company Number: US-PFM-2018-05583

PATIENT

DRUGS (6)
  1. HEMANGEOL [Suspect]
     Active Substance: PROPRANOLOL HYDROCHLORIDE
     Dosage: 1.4 ML, BID (2/DAY) 6 HOURS APART
     Route: 048
  2. HEMANGEOL [Suspect]
     Active Substance: PROPRANOLOL HYDROCHLORIDE
     Dosage: 2 ML, BID (2/DAY) 6 HOURS APART
     Route: 048
     Dates: start: 20180507
  3. HEMANGEOL [Suspect]
     Active Substance: PROPRANOLOL HYDROCHLORIDE
     Dosage: 1.8 ML, TID (3/DAY) AT LEAST 4 HOURS APART
     Route: 048
  4. HEMANGEOL [Suspect]
     Active Substance: PROPRANOLOL HYDROCHLORIDE
     Dosage: 2.7 ML, BID (2/DAY), AT LEAST 6 HOURS APART
     Route: 048
  5. HEMANGEOL [Suspect]
     Active Substance: PROPRANOLOL HYDROCHLORIDE
     Dosage: 1.8 ML, BID (2/DAY) 6 HOURS APART
     Route: 048
     Dates: start: 20180208
  6. HEMANGEOL [Suspect]
     Active Substance: PROPRANOLOL HYDROCHLORIDE
     Indication: INFANTILE HAEMANGIOMA
     Dosage: 0.7 ML, BID (2/DAY) 6 HOURS APART
     Route: 048
     Dates: start: 20180104

REACTIONS (6)
  - Inappropriate schedule of product administration [Unknown]
  - Sleep terror [Recovered/Resolved]
  - Middle insomnia [Recovered/Resolved]
  - Product use issue [Unknown]
  - Insomnia [Recovered/Resolved]
  - Off label use [Unknown]

NARRATIVE: CASE EVENT DATE: 201810
